FAERS Safety Report 11152860 (Version 1)
Quarter: 2015Q2

REPORT INFORMATION
  Report Type: Spontaneous
  Country: AR (occurrence: AR)
  Receive Date: 20150601
  Receipt Date: 20150601
  Transmission Date: 20150821
  Serious: Yes (Other)
  Sender: FDA-Public Use
  Company Number: CHPA2015AR006734

PATIENT
  Age: 52 Year
  Sex: Male

DRUGS (2)
  1. NICOTINELL [Suspect]
     Active Substance: NICOTINE
     Dosage: 4 MG, 12 DAILY
     Route: 065
     Dates: start: 201410
  2. NICOTINELL [Suspect]
     Active Substance: NICOTINE
     Indication: VASCULAR STENT INSERTION
     Dosage: 2 MG, 12 DAILY
     Route: 065
     Dates: start: 201410

REACTIONS (3)
  - Ischaemia [Recovering/Resolving]
  - Feeling of despair [Recovering/Resolving]
  - Product use issue [Unknown]

NARRATIVE: CASE EVENT DATE: 20150526
